FAERS Safety Report 19105010 (Version 1)
Quarter: 2021Q2

REPORT INFORMATION
  Report Type: Spontaneous
  Country: DE (occurrence: DE)
  Receive Date: 20210408
  Receipt Date: 20210408
  Transmission Date: 20210717
  Serious: Yes (Other)
  Sender: FDA-Public Use
  Company Number: DE-AUROBINDO-AUR-APL-2021-014185

PATIENT
  Age: 57 Year
  Sex: Male

DRUGS (2)
  1. PEGINTERFERON ALFA?2A. [Suspect]
     Active Substance: PEGINTERFERON ALFA-2A
     Indication: CHRONIC HEPATITIS C
     Dosage: UNK
     Route: 065
  2. RIBAVIRIN. [Suspect]
     Active Substance: RIBAVIRIN
     Indication: CHRONIC HEPATITIS C
     Dosage: UNK
     Route: 065

REACTIONS (14)
  - Depressed mood [Not Recovered/Not Resolved]
  - Depression [Recovering/Resolving]
  - Leukopenia [Recovered/Resolved]
  - Pruritus [Recovered/Resolved]
  - Impatience [Recovered/Resolved]
  - Insomnia [Recovered/Resolved]
  - Skin disorder [Recovered/Resolved]
  - Abdominal distension [Recovered/Resolved]
  - Thrombocytopenia [Recovering/Resolving]
  - Weight decreased [Recovered/Resolved]
  - Aggression [Recovered/Resolved]
  - Exercise tolerance decreased [Recovered/Resolved]
  - Dyspnoea exertional [Recovered/Resolved]
  - Alopecia [Recovered/Resolved]

NARRATIVE: CASE EVENT DATE: 20130225
